FAERS Safety Report 5358706-6 (Version None)
Quarter: 2007Q2

REPORT INFORMATION
  Report Type: 
  Country: None (occurrence: None)
  Receive Date: 20070615
  Receipt Date: 20070612
  Transmission Date: 20071010
  Serious: Yes (Life-Threatening, Hospitalization)
  Sender: FDA-Public Use
  Company Number: PHEH2007US05985

PATIENT
  Age: 50 Year
  Sex: Female

DRUGS (10)
  1. FENTANYL [Concomitant]
     Dosage: 75 MCG/HR
     Route: 062
  2. MARINOL [Concomitant]
     Dosage: 5 MG, BID
  3. NEURONTIN [Concomitant]
     Dosage: 400 MG, 3 BID
     Route: 048
  4. PROVERA [Concomitant]
     Dosage: 10 MG, QD
  5. PROTONIX [Concomitant]
     Dosage: 40 MG, QD
     Route: 048
  6. PROMETHAZINE [Concomitant]
     Dosage: 25 MG, TID
     Route: 048
  7. ZELNORM [Suspect]
     Indication: IRRITABLE BOWEL SYNDROME
     Dosage: 6 MG, TID
     Route: 048
     Dates: end: 20070401
  8. MIRALAX [Concomitant]
  9. OXYCODONE HCL [Concomitant]
  10. OXYGEN THERAPY [Concomitant]

REACTIONS (6)
  - CARDIAC ARREST [None]
  - CATHETERISATION CARDIAC [None]
  - CORONARY ARTERY STENOSIS [None]
  - DYSPEPSIA [None]
  - MYOCARDIAL INFARCTION [None]
  - STENT PLACEMENT [None]
